FAERS Safety Report 18124630 (Version 1)
Quarter: 2020Q3

REPORT INFORMATION
  Report Type: Spontaneous
  Country: US (occurrence: US)
  Receive Date: 20200807
  Receipt Date: 20200807
  Transmission Date: 20201103
  Serious: Yes (Other)
  Sender: FDA-Public Use
  Company Number: US-PURDUE-USA-2020-0159855

PATIENT

DRUGS (1)
  1. HYDROCODONE BITARTRATE (SIMILAR TO NDA 206627) [Suspect]
     Active Substance: HYDROCODONE BITARTRATE
     Indication: INTERVERTEBRAL DISC PROTRUSION
     Dosage: UNK
     Route: 048

REACTIONS (9)
  - Endodontic procedure [Unknown]
  - Tooth injury [Unknown]
  - Suicide attempt [Unknown]
  - Tooth extraction [Unknown]
  - Nerve injury [Unknown]
  - Withdrawal syndrome [Unknown]
  - Gingival disorder [Unknown]
  - Dependence [Unknown]
  - Depression [Unknown]
